FAERS Safety Report 7776978-5 (Version None)
Quarter: 2011Q3

REPORT INFORMATION
  Report Type: 
  Country: None (occurrence: None)
  Receive Date: 20110926
  Receipt Date: 20110919
  Transmission Date: 20111222
  Serious: Yes (Hospitalization)
  Sender: FDA-Public Use
  Company Number: ZA-SANOFI-AVENTIS-2011SA061206

PATIENT
  Sex: Female

DRUGS (3)
  1. DIAMICRON [Concomitant]
  2. GLUCOPHAGE [Concomitant]
  3. LANTUS [Suspect]
     Dosage: DOSE:30 UNIT(S)
     Route: 058

REACTIONS (2)
  - BRONCHITIS [None]
  - BLOOD GLUCOSE FLUCTUATION [None]
